FAERS Safety Report 4438848-X (Version None)
Quarter: 2004Q3

REPORT INFORMATION
  Report Type: 
  Country: None (occurrence: None)
  Receive Date: 20040830
  Receipt Date: 20040402
  Transmission Date: 20050211
  Serious: Yes (Other)
  Sender: FDA-Public Use
  Company Number: US-JNJFOC-20040600303

PATIENT
  Age: 37 Year
  Sex: Female

DRUGS (12)
  1. EXTRA STRENGTH TYLENOL [Suspect]
     Indication: MYALGIA
     Dosage: UNKNOWN PO, ^YEARS^
     Route: 048
  2. UNSPECIFIED NARCOTIC PAIN RELIEVERS (ALL OTHER THERAPEUTIC PRODUCTS) [Suspect]
     Indication: DRUG USE FOR UNKNOWN INDICATION
  3. CELEXA [Concomitant]
  4. ASPIRIN [Concomitant]
  5. ASACOL [Concomitant]
  6. CALCIUM (CALCIUM) [Concomitant]
  7. LEVOXYL [Concomitant]
  8. FOLGARD (FOLIC ACID) [Concomitant]
  9. KCL (POTASSIUM CHLORIDE) [Concomitant]
  10. FERRO-SEQUELS (FERRO-SEQUELS) [Concomitant]
  11. LOVENOX [Concomitant]
  12. PROGESTERONE VAGINAL SUPPOSITORY (PROGESTERONE) UNSPECIFIED [Concomitant]

REACTIONS (8)
  - BLOOD POTASSIUM INCREASED [None]
  - DEHYDRATION [None]
  - DIZZINESS [None]
  - DRUG ABUSER [None]
  - INSOMNIA [None]
  - MALNUTRITION [None]
  - PANIC ATTACK [None]
  - SLEEP DISORDER [None]
